FAERS Safety Report 7852953 (Version 3)
Quarter: 2014Q2

REPORT INFORMATION
  Report Type: Spontaneous
  Country: US (occurrence: US)
  Receive Date: 20110311
  Receipt Date: 20140529
  Transmission Date: 20141212
  Serious: Yes (Hospitalization)
  Sender: FDA-Public Use
  Company Number: US-B.I. PHARMACEUTICALS,INC./RIDGEFIELD-2011-BP-01346BP

PATIENT
  Age: 64 Year
  Sex: Female
  Weight: 82.55 kg

DRUGS (14)
  1. PRADAXA [Suspect]
     Indication: ATRIAL FIBRILLATION
     Dosage: 300 MG
     Route: 048
     Dates: start: 201011, end: 20110716
  2. LISINOPRIL [Concomitant]
     Indication: HYPERTENSION
     Route: 048
     Dates: end: 20110113
  3. LISINOPRIL [Concomitant]
     Dosage: 40 MG
     Route: 048
     Dates: start: 20110114
  4. LISINOPRIL [Concomitant]
     Dosage: 20 MG
     Route: 048
  5. DILTIAZEM [Concomitant]
     Dosage: 480 MG
     Route: 048
  6. FLUOXETINE [Concomitant]
     Dosage: 40 MG
     Route: 048
  7. BUPROPION XL [Concomitant]
     Indication: DEPRESSION
     Dosage: 300 MG
     Route: 048
  8. SIMVASTATIN [Concomitant]
     Indication: BLOOD CHOLESTEROL INCREASED
     Dosage: 40 MG
     Route: 048
  9. COLESTIPOL [Concomitant]
     Indication: COLON OPERATION
     Dosage: 3 G
     Route: 048
  10. IBUPROFEN PM [Concomitant]
     Route: 048
  11. COENZYME Q10 [Concomitant]
     Dosage: 1 ANZ
     Route: 048
  12. CENTRUM SILVER [Concomitant]
     Dosage: 1 ANZ
     Route: 048
  13. FISH OIL [Concomitant]
     Dosage: 2400 MG
     Route: 048
  14. ALEVE [Concomitant]
     Route: 048
     Dates: end: 20110716

REACTIONS (5)
  - Gastrointestinal haemorrhage [Unknown]
  - Haemorrhagic anaemia [Unknown]
  - Syncope [Unknown]
  - Abdominal pain [Recovered/Resolved]
  - Abdominal pain [Not Recovered/Not Resolved]
